FAERS Safety Report 8282467-4 (Version None)
Quarter: 2012Q2

REPORT INFORMATION
  Report Type: 
  Country: None (occurrence: None)
  Receive Date: 20120413
  Receipt Date: 20120410
  Transmission Date: 20120825
  Serious: Yes (Hospitalization, Other)
  Sender: FDA-Public Use
  Company Number: FR-PFIZER INC-2011096184

PATIENT
  Age: 81 Year
  Sex: Female

DRUGS (14)
  1. EQUANIL [Suspect]
     Dosage: 250 MG, 1X/DAY
     Route: 048
     Dates: end: 20100901
  2. CALCIUM CARBONATE [Concomitant]
     Dosage: 2 DF PER DAY
  3. XANAX [Suspect]
     Dosage: 0.75 MG, 1X/DAY
     Route: 048
     Dates: end: 20100901
  4. XANAX [Suspect]
     Dosage: 0.25 MG, 3X/DAY
     Route: 048
     Dates: start: 20100901
  5. ATHYMIL [Suspect]
     Dosage: 10 MG, 1X/DAY
     Route: 048
     Dates: start: 20091001, end: 20100901
  6. SIMVASTATIN [Concomitant]
     Dosage: 20 MG, 1X/DAY
  7. DUPHALAC [Concomitant]
     Dosage: 2 DF PER DAY
  8. ZOLPIDEM [Concomitant]
     Dosage: 0.5 DF PER DAY
  9. ZOLPIDEM TARTRATE [Suspect]
     Dosage: 5 MG, 1X/DAY
     Route: 048
     Dates: end: 20100901
  10. MEMANTINE HYDROCHLORIDE [Concomitant]
     Dosage: 20 MG, 1X/DAY
  11. ARICEPT [Suspect]
     Indication: DEMENTIA ALZHEIMER'S TYPE
     Dosage: 10 MG, 1X/DAY
     Route: 048
     Dates: start: 20070101, end: 20100901
  12. SERTRALINE HYDROCHLORIDE [Suspect]
     Dosage: 50 MG, 2X/DAY
     Route: 048
     Dates: start: 20070101, end: 20100901
  13. ACETAMINOPHEN [Concomitant]
     Dosage: 8 DF PER DAY
  14. LEVOTHYROXINE SODIUM [Concomitant]
     Dosage: 125 UG, 1X/DAY

REACTIONS (8)
  - HYDROCEPHALUS [None]
  - CONFUSIONAL STATE [None]
  - MEMORY IMPAIRMENT [None]
  - HYPOTHYROIDISM [None]
  - DISORIENTATION [None]
  - FALL [None]
  - HYPERNATRAEMIA [None]
  - MALNUTRITION [None]
